FAERS Safety Report 4585351-2 (Version None)
Quarter: 2005Q1

REPORT INFORMATION
  Report Type: 
  Country: None (occurrence: None)
  Receive Date: 20050214
  Receipt Date: 20050131
  Transmission Date: 20050727
  Serious: Yes (Other)
  Sender: FDA-Public Use
  Company Number: 2005015104

PATIENT
  Age: 68 Year
  Sex: Female
  Weight: 76.6579 kg

DRUGS (4)
  1. GLUCOTROL XL [Suspect]
     Dosage: 5 MG (5 MG 1 IN 1 D) ORAL
     Route: 048
     Dates: start: 19980101
  2. LEVOTHYROXINE SODIUM [Concomitant]
  3. ACETYLSALICYLIC ACID SRT [Concomitant]
  4. METFORMIN HCL [Concomitant]

REACTIONS (4)
  - BLOOD GLUCOSE INCREASED [None]
  - INFLUENZA LIKE ILLNESS [None]
  - PHARMACEUTICAL PRODUCT COMPLAINT [None]
  - STOOL ANALYSIS ABNORMAL [None]
